FAERS Safety Report 26037958 (Version 1)
Quarter: 2025Q4

REPORT INFORMATION
  Report Type: Spontaneous
  Country: US (occurrence: US)
  Receive Date: 20251112
  Receipt Date: 20251112
  Transmission Date: 20260117
  Serious: No
  Sender: SANOFI AVENTIS
  Company Number: US-SA-2025SA334417

PATIENT
  Age: 52 Year
  Sex: Female

DRUGS (3)
  1. DUPIXENT [Suspect]
     Active Substance: DUPILUMAB
     Indication: Urticaria
     Dosage: 600MG 1X
     Route: 058
     Dates: start: 20250916, end: 20250916
  2. DUPIXENT [Suspect]
     Active Substance: DUPILUMAB
     Dosage: 300 MG, QOW
     Route: 058
     Dates: start: 20251007, end: 20251007
  3. XOLAIR [Concomitant]
     Active Substance: OMALIZUMAB
     Dosage: UNK

REACTIONS (10)
  - Nasopharyngitis [Unknown]
  - Oropharyngeal pain [Unknown]
  - Ear pain [Unknown]
  - Respiratory tract congestion [Unknown]
  - Cough [Unknown]
  - Pain [Unknown]
  - Somnolence [Unknown]
  - Lethargy [Unknown]
  - Fatigue [Unknown]
  - Product use in unapproved indication [Unknown]

NARRATIVE: CASE EVENT DATE: 20250916
